FAERS Safety Report 14365691 (Version 1)
Quarter: 2018Q1

REPORT INFORMATION
  Report Type: Spontaneous
  Country: US (occurrence: US)
  Receive Date: 20180109
  Receipt Date: 20180109
  Transmission Date: 20180509
  Serious: Yes (Hospitalization)
  Sender: FDA-Public Use
  Company Number: US-STRIDES ARCOLAB LIMITED-2018SP000086

PATIENT

DRUGS (9)
  1. TACROLIMUS. [Interacting]
     Active Substance: TACROLIMUS
     Indication: RENAL TRANSPLANT
     Dosage: UNKNOWN
     Route: 065
  2. ACYCLOVIR                          /00587301/ [Interacting]
     Active Substance: ACYCLOVIR
     Indication: VARICELLA ZOSTER VIRUS INFECTION
     Dosage: 12.1 MG/KG, EVERY 12 HRS
     Route: 042
  3. VALACYCLOVIR [Concomitant]
     Active Substance: VALACYCLOVIR HYDROCHLORIDE
     Indication: INFECTION REACTIVATION
     Dosage: UNKNOWN
     Route: 048
  4. MYCOPHENOLATE MOFETIL. [Suspect]
     Active Substance: MYCOPHENOLATE MOFETIL
     Indication: RENAL TRANSPLANT
     Dosage: UNKNOWN
     Route: 065
  5. ACYCLOVIR                          /00587301/ [Interacting]
     Active Substance: ACYCLOVIR
     Indication: INFECTION REACTIVATION
     Dosage: UNK
     Route: 042
  6. VALACYCLOVIR [Concomitant]
     Active Substance: VALACYCLOVIR HYDROCHLORIDE
     Indication: ENCEPHALITIS
  7. VANCOMYCIN [Concomitant]
     Active Substance: VANCOMYCIN
     Indication: BACTERIAL INFECTION
     Dosage: 15 MG/KG EVERY 18 HOURS
     Route: 042
  8. VALACYCLOVIR [Concomitant]
     Active Substance: VALACYCLOVIR HYDROCHLORIDE
     Indication: VARICELLA ZOSTER VIRUS INFECTION
  9. VANCOMYCIN [Concomitant]
     Active Substance: VANCOMYCIN
     Indication: ENDOCARDITIS
     Dosage: UNK
     Route: 065

REACTIONS (14)
  - Drug interaction [Unknown]
  - Neurotoxicity [Recovered/Resolved]
  - Hyporesponsive to stimuli [Recovered/Resolved]
  - Hypovolaemia [Unknown]
  - Abnormal behaviour [Recovered/Resolved]
  - Confusional state [Recovered/Resolved]
  - Flat affect [Recovered/Resolved]
  - Nephropathy toxic [Unknown]
  - Disorientation [Recovered/Resolved]
  - Dysarthria [Recovered/Resolved]
  - Mental status changes [Recovered/Resolved]
  - Asterixis [Recovered/Resolved]
  - Somnolence [Recovered/Resolved]
  - Renal impairment [Unknown]
